FAERS Safety Report 25376780 (Version 1)
Quarter: 2025Q2

REPORT INFORMATION
  Report Type: Spontaneous
  Country: CH (occurrence: CH)
  Receive Date: 20250530
  Receipt Date: 20250530
  Transmission Date: 20250716
  Serious: Yes (Hospitalization)
  Sender: CHEPLAPHARM
  Company Number: None

PATIENT
  Age: 61 Year
  Sex: Female

DRUGS (6)
  1. QUETIAPINE [Interacting]
     Active Substance: QUETIAPINE
     Route: 048
     Dates: start: 20240404, end: 20240404
  2. QUETIAPINE [Interacting]
     Active Substance: QUETIAPINE
     Dates: end: 20240404
  3. MIDAZOLAM [Interacting]
     Active Substance: MIDAZOLAM
     Dates: start: 20240404, end: 20240404
  4. MIDAZOLAM [Interacting]
     Active Substance: MIDAZOLAM
     Dosage: AT BEDTIME?DAILY DOSE: 7.5 MILLIGRAM
     Dates: end: 20240404
  5. BROMAZEPAM [Interacting]
     Active Substance: BROMAZEPAM
  6. PREGABALIN [Interacting]
     Active Substance: PREGABALIN

REACTIONS (6)
  - Intentional overdose [Recovered/Resolved]
  - Drug interaction [Recovered/Resolved]
  - Depressed level of consciousness [Recovered/Resolved]
  - Respiratory failure [Recovered/Resolved]
  - Respiratory acidosis [Recovered/Resolved]
  - Weight increased [Not Recovered/Not Resolved]

NARRATIVE: CASE EVENT DATE: 20250404
